FAERS Safety Report 8336654-7 (Version None)
Quarter: 2012Q2

REPORT INFORMATION
  Report Type: 
  Country: None (occurrence: None)
  Receive Date: 20120504
  Receipt Date: 20120427
  Transmission Date: 20120825
  Serious: Yes (Hospitalization, Other)
  Sender: FDA-Public Use
  Company Number: US-BAYER-2011-074775

PATIENT
  Sex: Female
  Weight: 72.562 kg

DRUGS (1)
  1. YAZ [Suspect]
     Dosage: UNK
     Dates: start: 20070101, end: 20080101

REACTIONS (6)
  - THROMBOSIS [None]
  - MENOPAUSAL SYMPTOMS [None]
  - GALLBLADDER INJURY [None]
  - VAGINAL HAEMORRHAGE [None]
  - INJURY [None]
  - PAIN [None]
